FAERS Safety Report 15975946 (Version 1)
Quarter: 2019Q1

REPORT INFORMATION
  Report Type: Spontaneous
  Country: IT (occurrence: IT)
  Receive Date: 20190218
  Receipt Date: 20190218
  Transmission Date: 20190418
  Serious: Yes (Hospitalization, Other)
  Sender: FDA-Public Use
  Company Number: IT-PFIZER INC-747010

PATIENT
  Age: 61 Year
  Sex: Female

DRUGS (2)
  1. OXALIPLATIN. [Suspect]
     Active Substance: OXALIPLATIN
     Indication: NEUROENDOCRINE CARCINOMA
     Dosage: 200 MG, CYCLIC
     Route: 042
     Dates: start: 20101013, end: 20101013
  2. CAPECITABINE. [Concomitant]
     Active Substance: CAPECITABINE
     Dosage: 1000 MG/M2, 2X/DAY (FREQ: 2 DAY; INTERVAL: 1)

REACTIONS (3)
  - Dysaesthesia pharynx [Recovered/Resolved]
  - Neurotoxicity [Recovered/Resolved]
  - Dyspnoea [Recovered/Resolved]

NARRATIVE: CASE EVENT DATE: 20101013
